FAERS Safety Report 5509456-4 (Version None)
Quarter: 2007Q4

REPORT INFORMATION
  Report Type: 
  Country: None (occurrence: None)
  Receive Date: 20071106
  Receipt Date: 20071024
  Transmission Date: 20080405
  Serious: Yes (Other)
  Sender: FDA-Public Use
  Company Number: MC200700680

PATIENT
  Sex: Female

DRUGS (1)
  1. ANGIOMAX, ANGIOMAX(BIVALIRUDIN) INJECTION [Suspect]
     Indication: PERCUTANEOUS CORONARY INTERVENTION
     Dates: start: 20071002, end: 20071001

REACTIONS (1)
  - VASCULAR PSEUDOANEURYSM [None]
